FAERS Safety Report 8554957-8 (Version None)
Quarter: 2012Q3

REPORT INFORMATION
  Report Type: 
  Country: None (occurrence: None)
  Receive Date: 20120731
  Receipt Date: 20120724
  Transmission Date: 20120928
  Serious: No
  Sender: FDA-Public Use
  Company Number: US-UCBSA-062429

PATIENT
  Age: 47 Year
  Sex: Female
  Weight: 100 kg

DRUGS (4)
  1. PERCOCET [Concomitant]
     Dosage: 20 MG DAILY
     Route: 048
  2. ZYRTEC [Concomitant]
     Dosage: TOTAL DAILY DOSE: 10 MG, PRN
     Route: 048
  3. CIMZIA [Suspect]
     Indication: CROHN'S DISEASE
     Dosage: DOSE: 400 MG
     Route: 058
     Dates: start: 20090624
  4. FENTANYL CITRATE [Concomitant]
     Dosage: PATCH

REACTIONS (1)
  - SYSTEMIC LUPUS ERYTHEMATOSUS [None]
